FAERS Safety Report 20665563 (Version 1)
Quarter: 2022Q2

REPORT INFORMATION
  Report Type: Report from Study
  Country: EG (occurrence: EG)
  Receive Date: 20220402
  Receipt Date: 20220402
  Transmission Date: 20220720
  Serious: Yes (Other)
  Sender: FDA-Public Use
  Company Number: EG-NOVARTISPH-NVSC2022EG073197

PATIENT
  Age: 29 Year
  Sex: Female

DRUGS (1)
  1. GILENYA [Suspect]
     Active Substance: FINGOLIMOD HYDROCHLORIDE
     Indication: Multiple sclerosis
     Dosage: 0.5 MG, QD
     Route: 048
     Dates: start: 201912, end: 202102

REACTIONS (7)
  - Lymphocyte count increased [Unknown]
  - Multiple sclerosis relapse [Recovering/Resolving]
  - Herpes virus infection [Recovering/Resolving]
  - Headache [Not Recovered/Not Resolved]
  - Mental fatigue [Not Recovered/Not Resolved]
  - Hypoaesthesia [Recovering/Resolving]
  - Limb discomfort [Recovering/Resolving]

NARRATIVE: CASE EVENT DATE: 20220201
